FAERS Safety Report 19803893 (Version 1)
Quarter: 2021Q3

REPORT INFORMATION
  Report Type: Spontaneous
  Country: US (occurrence: US)
  Receive Date: 20210903
  Receipt Date: 20210903
  Transmission Date: 20211014
  Serious: Yes (Hospitalization)
  Sender: FDA-Public Use
  Company Number: None

PATIENT
  Age: 74 Year
  Sex: Male
  Weight: 98.3 kg

DRUGS (3)
  1. LENALIDOMIDE (CC?5013) [Suspect]
     Active Substance: LENALIDOMIDE
     Dates: end: 20210824
  2. DARATUMUMAB /RHUPH20 [Suspect]
     Active Substance: DARATUMUMAB\HYALURONIDASE-FIHJ
     Dates: end: 20210824
  3. DEXAMETHASONE. [Suspect]
     Active Substance: DEXAMETHASONE
     Dates: end: 20210824

REACTIONS (4)
  - Abdominal pain [None]
  - Flatulence [None]
  - Eructation [None]
  - Diarrhoea [None]

NARRATIVE: CASE EVENT DATE: 20210825
